FAERS Safety Report 5081005-7 (Version None)
Quarter: 2006Q3

REPORT INFORMATION
  Report Type: 
  Country: None (occurrence: None)
  Receive Date: 20060810
  Receipt Date: 20060728
  Transmission Date: 20061208
  Serious: Yes (Death, Life-Threatening, Hospitalization)
  Sender: FDA-Public Use
  Company Number: AUWYE514204AUG06

PATIENT
  Age: 29 Year
  Sex: Male

DRUGS (1)
  1. TIGECYCLINE (TIGECYCLINE, INJECTION) [Suspect]
     Indication: ENTEROCOCCAL INFECTION
     Dosage: 100 MG LOADING DOSE, THEN 50 MG EVERY 12 HOURS INTRAVENOUS
     Route: 042
     Dates: start: 20060406, end: 20060411

REACTIONS (3)
  - FUNGAL INFECTION [None]
  - HAEMORRHAGE [None]
  - LUNG INFECTION [None]
